FAERS Safety Report 6697623-6 (Version None)
Quarter: 2010Q2

REPORT INFORMATION
  Report Type: 
  Country: None (occurrence: None)
  Receive Date: 20100422
  Receipt Date: 20100409
  Transmission Date: 20101027
  Serious: Yes (Death)
  Sender: FDA-Public Use
  Company Number: KV200900723

PATIENT
  Age: 80 Year
  Sex: Female
  Weight: 82.1 kg

DRUGS (13)
  1. ISOSORBIDE MONONITRATE [Suspect]
     Indication: DRUG USE FOR UNKNOWN INDICATION
     Dosage: 30 MG, QD, ORAL
     Route: 048
     Dates: start: 20080117, end: 20080816
  2. ISOSORBIDE MONONITRATE [Suspect]
     Indication: DRUG USE FOR UNKNOWN INDICATION
     Dosage: 60 MG, QD, ORAL
     Route: 048
     Dates: start: 20050101
  3. COREG [Concomitant]
  4. SYNTHROID [Concomitant]
  5. TRAZODONE HCL [Concomitant]
  6. LISINOPRIL [Concomitant]
  7. ASPIRIN [Concomitant]
  8. VYTORIN [Concomitant]
  9. INSULIN (INSULIN) [Concomitant]
  10. LASIX [Concomitant]
  11. PLAVIX [Concomitant]
  12. KLOR-CON [Concomitant]
  13. HYDRALAZINE HCL [Concomitant]

REACTIONS (39)
  - ANOXIC ENCEPHALOPATHY [None]
  - APNOEIC ATTACK [None]
  - ASPIRATION [None]
  - BUNDLE BRANCH BLOCK LEFT [None]
  - CATARACT [None]
  - CEREBRAL ATROPHY [None]
  - CEREBROVASCULAR DISORDER [None]
  - CONTUSION [None]
  - CORONARY ARTERY DISEASE [None]
  - COUGH [None]
  - DYSPNOEA [None]
  - DYSPNOEA EXERTIONAL [None]
  - EYELIDS PRURITUS [None]
  - FALL [None]
  - HYPERTENSION [None]
  - ISCHAEMIC CARDIOMYOPATHY [None]
  - LEFT VENTRICULAR DYSFUNCTION [None]
  - LOW DENSITY LIPOPROTEIN INCREASED [None]
  - LUNG INFILTRATION [None]
  - MITRAL VALVE INCOMPETENCE [None]
  - MYOCARDIAL INFARCTION [None]
  - MYOCLONIC EPILEPSY [None]
  - MYOCLONUS [None]
  - NAIL AVULSION [None]
  - OBESITY [None]
  - OEDEMA PERIPHERAL [None]
  - OVERDOSE [None]
  - PULSE ABSENT [None]
  - QRS AXIS ABNORMAL [None]
  - RESPIRATION ABNORMAL [None]
  - RESPIRATORY DISTRESS [None]
  - RESPIRATORY FAILURE [None]
  - SINUS DISORDER [None]
  - TRICUSPID VALVE INCOMPETENCE [None]
  - TYPE 2 DIABETES MELLITUS [None]
  - UNRESPONSIVE TO STIMULI [None]
  - URINARY TRACT INFECTION [None]
  - VISION BLURRED [None]
  - VISUAL ACUITY REDUCED [None]
